FAERS Safety Report 21835037 (Version 4)
Quarter: 2023Q2

REPORT INFORMATION
  Report Type: Report from Study
  Country: US (occurrence: US)
  Receive Date: 20230109
  Receipt Date: 20230609
  Transmission Date: 20230722
  Serious: Yes (Hospitalization, Other)
  Sender: FDA-Public Use
  Company Number: US-TAKEDA-US201813864

PATIENT
  Age: 9 Year
  Sex: Male
  Weight: 62 kg

DRUGS (12)
  1. IDURSULFASE [Suspect]
     Active Substance: IDURSULFASE
     Indication: Mucopolysaccharidosis II
     Dosage: UNK UNK, 1/WEEK
     Route: 042
     Dates: start: 20180405
  2. IDURSULFASE [Suspect]
     Active Substance: IDURSULFASE
     Dosage: 15 INTERNATIONAL UNIT, 1/WEEK
     Route: 042
     Dates: start: 20230424
  3. IDURSULFASE [Suspect]
     Active Substance: IDURSULFASE
     Dosage: 30 MILLIGRAM
     Route: 065
  4. IDURSULFASE [Suspect]
     Active Substance: IDURSULFASE
     Dosage: 15 INTERNATIONAL UNIT
     Route: 042
     Dates: start: 20230606
  5. COVID-19 VACCINE NOS [Suspect]
     Active Substance: COVID-19 VACCINE NOS
     Indication: COVID-19 immunisation
     Dosage: UNK
     Route: 065
     Dates: start: 20211231
  6. LISINOPRIL [Concomitant]
     Active Substance: LISINOPRIL
  7. Citirizine [Concomitant]
  8. DEPAKOTE [Concomitant]
     Active Substance: DIVALPROEX SODIUM
  9. OXCARBAZEPINE [Concomitant]
     Active Substance: OXCARBAZEPINE
  10. MELATONIN [Concomitant]
     Active Substance: MELATONIN
  11. VITAMIN D [Concomitant]
     Active Substance: VITAMIN D NOS
  12. FLONASE [Concomitant]
     Active Substance: FLUTICASONE PROPIONATE

REACTIONS (4)
  - Pyrexia [Recovered/Resolved]
  - Seizure [Recovering/Resolving]
  - Weight increased [Unknown]
  - Inappropriate schedule of product administration [Recovered/Resolved]

NARRATIVE: CASE EVENT DATE: 20180407
